FAERS Safety Report 11721120 (Version 2)
Quarter: 2015Q4

REPORT INFORMATION
  Report Type: Report from Study
  Country: ES (occurrence: ES)
  Receive Date: 20151110
  Receipt Date: 20151119
  Transmission Date: 20160304
  Serious: Yes (Death, Other)
  Sender: FDA-Public Use
  Company Number: ES-GILEAD-2015-0181278

PATIENT

DRUGS (1)
  1. EMTRICITABINE/RILPIVIRINE/TENOFOVIR DF [Suspect]
     Active Substance: EMTRICITABINE\RILPIVIRINE\TENOFOVIR DISOPROXIL FUMARATE
     Indication: HIV INFECTION
     Route: 065

REACTIONS (2)
  - Hepatic encephalopathy [Fatal]
  - Upper gastrointestinal haemorrhage [Fatal]
